FAERS Safety Report 18077035 (Version 2)
Quarter: 2020Q3

REPORT INFORMATION
  Report Type: Spontaneous
  Country: US (occurrence: US)
  Receive Date: 20200728
  Receipt Date: 20200824
  Transmission Date: 20201103
  Serious: Yes (Hospitalization, Other)
  Sender: FDA-Public Use
  Company Number: US-LUPIN PHARMACEUTICALS INC.-2020-03643

PATIENT
  Age: 11 Year
  Sex: Female
  Weight: 30 kg

DRUGS (18)
  1. BACLOFEN. [Interacting]
     Active Substance: BACLOFEN
     Indication: PRODUCT USED FOR UNKNOWN INDICATION
     Dosage: 1051 MICROGRAM, QD
     Route: 048
  2. LORAZEPAM. [Interacting]
     Active Substance: LORAZEPAM
     Dosage: 1 MILLIGRAM, QD (AT BEDTIME)
     Route: 048
  3. GLYCOPYRROLATE [GLYCOPYRRONIUM BROMIDE] [Interacting]
     Active Substance: GLYCOPYRROLATE
     Indication: GENERALISED TONIC-CLONIC SEIZURE
     Dosage: 1 MILLIGRAM, QD (IN THE MORNING AS REQUIRED)
     Route: 048
  4. CLOBAZAM. [Interacting]
     Active Substance: CLOBAZAM
     Dosage: 5 MILLIGRAM, BID (0.3 MG/KG/DAY)
     Route: 048
  5. LEVETIRACETAM. [Interacting]
     Active Substance: LEVETIRACETAM
     Indication: GENERALISED TONIC-CLONIC SEIZURE
     Dosage: 1200 MILLIGRAM, BID (80 MG/KG/DAY)
     Route: 048
  6. CLONAZEPAM. [Interacting]
     Active Substance: CLONAZEPAM
     Indication: GENERALISED TONIC-CLONIC SEIZURE
     Dosage: UNK, TID (0.02 MG/KG/DAY DIVIDED THREE TIMES A DAY)
     Route: 048
  7. LORAZEPAM. [Interacting]
     Active Substance: LORAZEPAM
     Indication: ANXIETY
     Dosage: 0.07 MILLIGRAM/KILOGRAM, UNK
     Route: 048
  8. GLYCOPYRROLATE [GLYCOPYRRONIUM BROMIDE] [Interacting]
     Active Substance: GLYCOPYRROLATE
     Dosage: 1.5 MILLIGRAM, QD(IN THE NOON AS REQUIRED)
     Route: 048
  9. CLOBAZAM. [Suspect]
     Active Substance: CLOBAZAM
     Indication: GENERALISED TONIC-CLONIC SEIZURE
     Dosage: 5 MILLIGRAM, BID (0.3 MG/KG/DAY)
     Route: 048
  10. CLOBAZAM. [Interacting]
     Active Substance: CLOBAZAM
     Dosage: 10 MILLIGRAM, BID (0.5 MG/KG/DAY)
     Route: 048
  11. CLONIDINE. [Interacting]
     Active Substance: CLONIDINE
     Indication: GENERALISED TONIC-CLONIC SEIZURE
     Dosage: 0.2 MILLIGRAM, QD (AT BEDTIME)
     Route: 048
  12. CLOBAZAM. [Interacting]
     Active Substance: CLOBAZAM
     Dosage: 7.5 MILLIGRAM, BID (0.5 MG/KG/DAY)
     Route: 048
  13. MELATONIN [Interacting]
     Active Substance: MELATONIN
     Indication: GENERALISED TONIC-CLONIC SEIZURE
     Dosage: 3 MILLIGRAM, QD (AT BEDTIME)
     Route: 048
  14. GLYCOPYRROLATE [GLYCOPYRRONIUM BROMIDE] [Interacting]
     Active Substance: GLYCOPYRROLATE
     Dosage: 1 MILLIGRAM, QD (IN THE NIGHT AS REQUIRED)
     Route: 048
  15. DIPHENHYDRAMINE. [Interacting]
     Active Substance: DIPHENHYDRAMINE
     Indication: PRODUCT USED FOR UNKNOWN INDICATION
     Dosage: UNK
     Route: 048
  16. LORAZEPAM. [Interacting]
     Active Substance: LORAZEPAM
     Dosage: 0.03 MILLIGRAM/KILOGRAM, QD (0.03 MG/KG/DOSE)
     Route: 048
  17. LORAZEPAM. [Interacting]
     Active Substance: LORAZEPAM
     Dosage: 2 MILLIGRAM (EVERY 4?6 HOURS AS NEEDED)
     Route: 048
  18. LORATADINE. [Interacting]
     Active Substance: LORATADINE
     Indication: GENERALISED TONIC-CLONIC SEIZURE
     Dosage: 10 MILLIGRAM, QD
     Route: 048

REACTIONS (5)
  - Bradycardia [Unknown]
  - Drug interaction [Unknown]
  - Sedation complication [Recovered/Resolved]
  - Seizure [Recovered/Resolved]
  - Hypersomnia [Recovered/Resolved]
